FAERS Safety Report 16155772 (Version 1)
Quarter: 2019Q2

REPORT INFORMATION
  Report Type: Spontaneous
  Country: GB (occurrence: GB)
  Receive Date: 20190404
  Receipt Date: 20190404
  Transmission Date: 20190711
  Serious: Yes (Life-Threatening)
  Sender: FDA-Public Use
  Company Number: GB-ACCORD-117796

PATIENT
  Age: 66 Year
  Sex: Female
  Weight: 52.8 kg

DRUGS (12)
  1. LAMOTRIGINE. [Concomitant]
     Active Substance: LAMOTRIGINE
  2. CITALOPRAM [Concomitant]
     Active Substance: CITALOPRAM HYDROBROMIDE
  3. PROCYCLIDINE [Concomitant]
     Active Substance: PROCYCLIDINE
     Dosage: ORAL, INTRAMUSCULAR, AS NEEDED.
  4. BUTRANS [Concomitant]
     Active Substance: BUPRENORPHINE
     Dosage: 5MCG/HOUR
  5. TOPIRAMATE. [Suspect]
     Active Substance: TOPIRAMATE
     Indication: DEMENTIA ALZHEIMER^S TYPE
     Route: 048
     Dates: end: 20190103
  6. TOPIRAMATE. [Suspect]
     Active Substance: TOPIRAMATE
     Indication: DEMENTIA ALZHEIMER^S TYPE
     Route: 048
     Dates: start: 20181221
  7. CLONAZEPAM. [Concomitant]
     Active Substance: CLONAZEPAM
  8. SENNA ALEXANDRINA [Concomitant]
     Active Substance: SENNA LEAF
  9. VALPROIC ACID. [Suspect]
     Active Substance: VALPROIC ACID
     Indication: MYOCLONIC EPILEPSY
     Dosage: 200MG TWICE DAILY, HIGHEST DOSE 400MG TWICE DAILY, WITHDRAWN FROM 300MG TWICE DAILY OVER 2 DAYS.
     Route: 048
     Dates: start: 20181101, end: 20190124
  10. DONEPEZIL/DONEPEZIL HYDROCHLORIDE [Concomitant]
  11. TOPIRAMATE. [Suspect]
     Active Substance: TOPIRAMATE
     Indication: DEMENTIA ALZHEIMER^S TYPE
     Dosage: ALSO TAKEN 50 MG ON 03-JAN-2019,FROM 21-DEC-2018 FOR 1 WEEK.
     Route: 048
     Dates: start: 20190104, end: 20190107
  12. MIRTAZAPINE. [Concomitant]
     Active Substance: MIRTAZAPINE

REACTIONS (4)
  - Hypertonia [Unknown]
  - Unresponsive to stimuli [Unknown]
  - Encephalopathy [Recovering/Resolving]
  - Epilepsy [Unknown]

NARRATIVE: CASE EVENT DATE: 20181231
